FAERS Safety Report 7737839-0 (Version None)
Quarter: 2011Q3

REPORT INFORMATION
  Report Type: 
  Country: None (occurrence: None)
  Receive Date: 20110908
  Receipt Date: 20110902
  Transmission Date: 20111222
  Serious: Yes (Death, Hospitalization, Other)
  Sender: FDA-Public Use
  Company Number: US-AMGEN-USASP2011039982

PATIENT
  Age: 52 Year
  Sex: Female

DRUGS (4)
  1. NPLATE [Suspect]
     Indication: IDIOPATHIC THROMBOCYTOPENIC PURPURA
     Dosage: 10 MUG/KG, UNK
     Dates: start: 20110311, end: 20110412
  2. RITUXIMAB [Concomitant]
  3. CORTICOSTEROIDS [Concomitant]
  4. IVIGLOB-EX [Concomitant]

REACTIONS (3)
  - SUBDURAL HAEMATOMA [None]
  - HAEMATOLOGICAL MALIGNANCY [None]
  - DRUG INEFFECTIVE [None]
